FAERS Safety Report 6257157-X (Version None)
Quarter: 2009Q3

REPORT INFORMATION
  Report Type: 
  Country: None (occurrence: None)
  Receive Date: 20090706
  Receipt Date: 20090223
  Transmission Date: 20100115
  Serious: No
  Sender: FDA-Public Use
  Company Number: US-BAYER-200915924NA

PATIENT
  Age: 25 Year
  Sex: Male
  Weight: 59 kg

DRUGS (2)
  1. ULTRAVIST 300 [Suspect]
     Indication: COMPUTERISED TOMOGRAM ABDOMEN
     Dosage: TOTAL DAILY DOSE: 96 ML  UNIT DOSE: 500 ML
     Route: 042
     Dates: start: 20090210, end: 20090210
  2. REDI-CAT [Concomitant]
     Route: 048
     Dates: start: 20090210, end: 20090210

REACTIONS (2)
  - NAUSEA [None]
  - VOMITING [None]
